FAERS Safety Report 22726044 (Version 3)
Quarter: 2023Q4

REPORT INFORMATION
  Report Type: Spontaneous
  Country: US (occurrence: US)
  Receive Date: 20230720
  Receipt Date: 20231023
  Transmission Date: 20240109
  Serious: Yes (Death, Other)
  Sender: FDA-Public Use
  Company Number: US-BRISTOL-MYERS SQUIBB COMPANY-2023-101489

PATIENT
  Age: 22 Year
  Sex: Female

DRUGS (2)
  1. ORENCIA [Suspect]
     Active Substance: ABATACEPT
     Indication: Juvenile psoriatic arthritis
     Dosage: TWO (2) VIALS Q28 DAYS.
     Route: 042
     Dates: start: 20200511
  2. ORENCIA [Suspect]
     Active Substance: ABATACEPT
     Dosage: TWO (2) VIALS Q28 DAYS.
     Route: 042
     Dates: start: 20210301

REACTIONS (1)
  - Death [Fatal]
